FAERS Safety Report 10216882 (Version 1)
Quarter: 2014Q2

REPORT INFORMATION
  Report Type: Spontaneous
  Country: US (occurrence: US)
  Receive Date: 20140604
  Receipt Date: 20140604
  Transmission Date: 20141212
  Serious: No
  Sender: FDA-Public Use
  Company Number: US-009507513-1405USA014670

PATIENT
  Age: 43 Year
  Sex: Female
  Weight: 61.22 kg

DRUGS (1)
  1. NUVARING [Suspect]
     Dosage: 3 WEEKS IN / 1 WEEK OUT
     Route: 067

REACTIONS (1)
  - Inappropriate schedule of drug administration [Unknown]
